FAERS Safety Report 5619340-3 (Version None)
Quarter: 2008Q1

REPORT INFORMATION
  Report Type: 
  Country: None (occurrence: None)
  Receive Date: 20080114
  Receipt Date: 20070301
  Transmission Date: 20080703
  Serious: Yes (Hospitalization)
  Sender: FDA-Public Use
  Company Number: A03200701787

PATIENT
  Sex: Male

DRUGS (3)
  1. PLAVIX [Suspect]
     Indication: ARTERIOSCLEROSIS CORONARY ARTERY
     Dosage: ORAL
     Route: 048
     Dates: start: 20040610
  2. PLAVIX [Suspect]
     Indication: PERIPHERAL VASCULAR DISORDER
     Dosage: ORAL
     Route: 048
     Dates: start: 20040610
  3. ACETYLSALICYLIC ACID SRT [Concomitant]

REACTIONS (2)
  - ANAEMIA [None]
  - UPPER GASTROINTESTINAL HAEMORRHAGE [None]
